FAERS Safety Report 13980363 (Version 2)
Quarter: 2017Q4

REPORT INFORMATION
  Report Type: Report from Study
  Country: None (occurrence: US)
  Receive Date: 20170917
  Receipt Date: 20171004
  Transmission Date: 20180321
  Serious: Yes (Hospitalization, Other)
  Sender: FDA-Public Use
  Company Number: US-ABBVIE-17K-163-2102784-00

PATIENT
  Age: 29 Year
  Sex: Female
  Weight: 79 kg

DRUGS (1)
  1. HUMIRA [Suspect]
     Active Substance: ADALIMUMAB
     Indication: HIDRADENITIS
     Route: 058
     Dates: start: 20170412

REACTIONS (6)
  - Abortion induced [Unknown]
  - Abortion induced incomplete [Unknown]
  - Exposure during pregnancy [Unknown]
  - Foetal death [Unknown]
  - Unwanted pregnancy [Unknown]
  - Ectopic pregnancy [Unknown]

NARRATIVE: CASE EVENT DATE: 2017
